FAERS Safety Report 5766710-9 (Version None)
Quarter: 2008Q2

REPORT INFORMATION
  Report Type: 
  Country: None (occurrence: None)
  Receive Date: 20080610
  Receipt Date: 20080610
  Transmission Date: 20081010
  Serious: No
  Sender: FDA-Public Use
  Company Number: None

PATIENT
  Sex: Male
  Weight: 102.5129 kg

DRUGS (1)
  1. GLUCOPHAGE [Suspect]
     Dosage: 500 BID PO
     Route: 048
     Dates: start: 20070601, end: 20080601

REACTIONS (2)
  - HYPERHIDROSIS [None]
  - MUSCLE SPASMS [None]
